FAERS Safety Report 21357835 (Version 1)
Quarter: 2022Q3

REPORT INFORMATION
  Report Type: Report from Study
  Country: US (occurrence: US)
  Receive Date: 20220921
  Receipt Date: 20220921
  Transmission Date: 20221027
  Serious: Yes (Hospitalization)
  Sender: FDA-Public Use
  Company Number: US-EXELIXIS-CABO-22055598

PATIENT
  Age: 54 Year
  Sex: Female

DRUGS (3)
  1. CABOMETYX [Suspect]
     Active Substance: CABOZANTINIB S-MALATE
     Indication: Renal cancer
     Dosage: 40 MG, QD
     Route: 048
     Dates: start: 20220512
  2. LENVIMA [Suspect]
     Active Substance: LENVATINIB
     Indication: Renal cancer
     Dosage: UNK
  3. EVEROLIMUS [Concomitant]
     Active Substance: EVEROLIMUS
     Dosage: UNK

REACTIONS (2)
  - Urinary tract infection [Unknown]
  - Nausea [Unknown]

NARRATIVE: CASE EVENT DATE: 20220913
